FAERS Safety Report 6406234-9 (Version None)
Quarter: 2009Q4

REPORT INFORMATION
  Report Type: 
  Country: None (occurrence: None)
  Receive Date: 20091019
  Receipt Date: 20091006
  Transmission Date: 20100525
  Serious: Yes (Hospitalization, Other)
  Sender: FDA-Public Use
  Company Number: PHHY2009ZA34902

PATIENT
  Sex: Female
  Weight: 61 kg

DRUGS (5)
  1. GLEEVEC [Suspect]
     Indication: CHRONIC MYELOID LEUKAEMIA
     Dosage: 400 MG, QD
     Route: 048
     Dates: start: 20090601, end: 20090629
  2. DIFLUCAN [Concomitant]
     Indication: FUNGAL INFECTION
     Dosage: 200 MG, UNK
     Route: 048
     Dates: start: 20090713, end: 20090728
  3. CALCIUM SANDOZ [Concomitant]
     Indication: HYPOCALCAEMIA
     Dosage: 2 DF, UNK
     Route: 048
     Dates: start: 20090713, end: 20090723
  4. LASIX [Concomitant]
     Indication: FLUID OVERLOAD
     Dosage: 40 MG/DAY ONCE
     Route: 048
     Dates: start: 20090710, end: 20090715
  5. HYDROXYUREA [Concomitant]

REACTIONS (10)
  - BLOOD CREATININE INCREASED [None]
  - BLOOD SODIUM DECREASED [None]
  - DRUG RASH WITH EOSINOPHILIA AND SYSTEMIC SYMPTOMS [None]
  - FATIGUE [None]
  - GENERALISED ERYTHEMA [None]
  - HEPATITIS [None]
  - PYREXIA [None]
  - RASH [None]
  - SKIN EXFOLIATION [None]
  - STEVENS-JOHNSON SYNDROME [None]
